FAERS Safety Report 11402559 (Version 1)
Quarter: 2015Q3

REPORT INFORMATION
  Report Type: Spontaneous
  Country: US (occurrence: US)
  Receive Date: 20150821
  Receipt Date: 20150821
  Transmission Date: 20151125
  Serious: No
  Sender: FDA-Public Use
  Company Number: US-ROCHE-1337067

PATIENT
  Sex: Male

DRUGS (6)
  1. PEGASYS [Suspect]
     Active Substance: PEGINTERFERON ALFA-2A
     Indication: HEPATITIS C
     Route: 058
     Dates: start: 20131209
  2. RIBAVIRIN. [Suspect]
     Active Substance: RIBAVIRIN
     Indication: HEPATITIS C
     Dosage: DIVIDED DOSES 600/600
     Route: 065
     Dates: start: 20131209
  3. INSULIN [Concomitant]
     Active Substance: INSULIN NOS
  4. BENADRYL [Concomitant]
     Active Substance: DIPHENHYDRAMINE HYDROCHLORIDE
  5. GLUCOPHAGE [Concomitant]
     Active Substance: METFORMIN HYDROCHLORIDE
  6. TELAPREVIR [Suspect]
     Active Substance: TELAPREVIR
     Indication: HEPATITIS C
     Route: 065
     Dates: start: 20131209

REACTIONS (9)
  - Fatigue [Unknown]
  - Injection site pruritus [Unknown]
  - Blood pressure decreased [Unknown]
  - Pruritus [Recovering/Resolving]
  - Anger [Unknown]
  - Blood glucose increased [Recovering/Resolving]
  - Erythema [Unknown]
  - Rash [Unknown]
  - Irritability [Unknown]
